FAERS Safety Report 11865272 (Version 2)
Quarter: 2016Q1

REPORT INFORMATION
  Report Type: Spontaneous
  Country: JP (occurrence: JP)
  Receive Date: 20151223
  Receipt Date: 20160129
  Transmission Date: 20160526
  Serious: Yes (Hospitalization)
  Sender: FDA-Public Use
  Company Number: JP-PFIZER INC-2015349968

PATIENT
  Age: 70 Year
  Sex: Female
  Weight: 49 kg

DRUGS (7)
  1. CELECOX [Suspect]
     Active Substance: CELECOXIB
     Indication: PAIN
     Dosage: 100 MG, 2X/DAY
     Route: 048
     Dates: start: 20150930, end: 20151014
  2. METHYCOBAL [Concomitant]
     Active Substance: METHYLCOBALAMIN
     Indication: PAIN
     Dosage: 500 UG, 2X/DAY
     Route: 048
     Dates: start: 20150930, end: 20151014
  3. TRAMAL [Suspect]
     Active Substance: TRAMADOL
     Indication: PAIN
     Dosage: 25 MG, 2X/DAY
     Route: 048
     Dates: start: 20150930, end: 20151014
  4. ANTAGOSTIN [Suspect]
     Active Substance: TEPRENONE
     Indication: PROPHYLAXIS
     Dosage: 50 MG, 2X/DAY
     Route: 048
     Dates: start: 20150930, end: 20151014
  5. LYRICA [Suspect]
     Active Substance: PREGABALIN
     Indication: PAIN
     Dosage: 75 MG, 1X/DAY
     Route: 048
     Dates: start: 20150930, end: 20151014
  6. TEPRENONE [Suspect]
     Active Substance: TEPRENONE
     Indication: PROPHYLAXIS
     Dosage: 50 MG, 2X/DAY
     Route: 048
     Dates: start: 20151007, end: 20151014
  7. METHYCOBIDE [Concomitant]
     Indication: VITAMIN SUPPLEMENTATION
     Dosage: 500 UG, 2X/DAY
     Route: 048
     Dates: start: 20151007, end: 20151014

REACTIONS (1)
  - Erythema multiforme [Recovering/Resolving]

NARRATIVE: CASE EVENT DATE: 20151013
